FAERS Safety Report 4499943-2 (Version None)
Quarter: 2004Q4

REPORT INFORMATION
  Report Type: 
  Country: None (occurrence: None)
  Receive Date: 20041112
  Receipt Date: 20041012
  Transmission Date: 20050328
  Serious: No
  Sender: FDA-Public Use
  Company Number: US-MERCK-0410USA01925

PATIENT
  Age: 0 Day
  Sex: Female
  Weight: 4 kg

DRUGS (1)
  1. FOSAMAX [Suspect]
     Indication: OSTEOPOROSIS
     Dates: start: 19990101, end: 20030601

REACTIONS (1)
  - HIP DYSPLASIA [None]
